FAERS Safety Report 21567806 (Version 1)
Quarter: 2022Q4

REPORT INFORMATION
  Report Type: Spontaneous
  Country: CN (occurrence: CN)
  Receive Date: 20221108
  Receipt Date: 20221108
  Transmission Date: 20230113
  Serious: Yes (Other)
  Sender: FDA-Public Use
  Company Number: None

PATIENT
  Age: 8 Year
  Sex: Female
  Weight: 20 kg

DRUGS (4)
  1. CYCLOPHOSPHAMIDE [Suspect]
     Active Substance: CYCLOPHOSPHAMIDE
     Indication: Chemotherapy
     Dosage: 0.85 G, QD, DILUTED WITH 100 ML OF 0.95 % SODIUM CHLORIDE
     Route: 042
     Dates: start: 20220925, end: 20220925
  2. SODIUM CHLORIDE [Suspect]
     Active Substance: SODIUM CHLORIDE
     Indication: Medication dilution
     Dosage: 100 ML, QD, USED TO DILUTE 0.85G CYCLOPHOSPHAMIDE
     Route: 042
     Dates: start: 20220925, end: 20220925
  3. SODIUM CHLORIDE [Suspect]
     Active Substance: SODIUM CHLORIDE
     Dosage: 5 ML, BID, USED TO DILUTE 0.043 G OF CYTOSAR
     Route: 037
     Dates: start: 20220925, end: 20221002
  4. CYTARABINE [Suspect]
     Active Substance: CYTARABINE
     Indication: Chemotherapy
     Dosage: 0.043 G, BID, DILUTED WITH 5 ML OF 0.9 % SODIUM CHLORIDE
     Route: 037
     Dates: start: 20220925, end: 20221002

REACTIONS (1)
  - Myelosuppression [Recovering/Resolving]

NARRATIVE: CASE EVENT DATE: 20221009
